FAERS Safety Report 6074705-3 (Version None)
Quarter: 2009Q1

REPORT INFORMATION
  Report Type: 
  Country: None (occurrence: None)
  Receive Date: 20090210
  Receipt Date: 20090210
  Transmission Date: 20090719
  Serious: Yes (Life-Threatening, Other)
  Sender: FDA-Public Use
  Company Number: None

PATIENT
  Sex: Male
  Weight: 90.7194 kg

DRUGS (4)
  1. DEPAKOTE ER [Suspect]
     Indication: AGGRESSION
     Dosage: 4000MG TRIED BOTH BID AND Q AM DOSAGE P.O.
     Route: 048
     Dates: start: 20050112
  2. DEPAKOTE ER [Suspect]
     Indication: TEMPORAL LOBE EPILEPSY
     Dosage: 4000MG TRIED BOTH BID AND Q AM DOSAGE P.O.
     Route: 048
     Dates: start: 20050112
  3. LIPITOR [Concomitant]
  4. PROVIGIL [Concomitant]

REACTIONS (5)
  - ANTICONVULSANT DRUG LEVEL DECREASED [None]
  - HOMICIDE [None]
  - PRODUCT QUALITY ISSUE [None]
  - ROAD TRAFFIC ACCIDENT [None]
  - SOMNOLENCE [None]
